FAERS Safety Report 16061768 (Version 1)
Quarter: 2019Q2

REPORT INFORMATION
  Report Type: Spontaneous
  Country: US (occurrence: US)
  Receive Date: 20190312
  Receipt Date: 20190312
  Transmission Date: 20190711
  Serious: Yes (Hospitalization)
  Sender: FDA-Public Use
  Company Number: None

PATIENT
  Sex: Female

DRUGS (3)
  1. SEROQUEL 25MG TABLETS [Concomitant]
     Dates: start: 20181221
  2. DICYCLOMINE 10MG CAPSULES [Concomitant]
     Dates: start: 20181221
  3. HUMIRA [Suspect]
     Active Substance: ADALIMUMAB
     Indication: COLITIS ULCERATIVE
     Dosage: ?          OTHER FREQUENCY:EVERY OTHER WEEK;?
     Route: 058

REACTIONS (4)
  - Thrombosis [None]
  - Asthenia [None]
  - Ill-defined disorder [None]
  - Arthralgia [None]
